FAERS Safety Report 4297479-5 (Version None)
Quarter: 2004Q1

REPORT INFORMATION
  Report Type: 
  Country: None (occurrence: None)
  Receive Date: 20040218
  Receipt Date: 20040213
  Transmission Date: 20041129
  Serious: Yes (Hospitalization)
  Sender: FDA-Public Use
  Company Number: US-GLAXOSMITHKLINE-A0498155A

PATIENT
  Age: 25 Year
  Sex: Female

DRUGS (5)
  1. SEREVENT [Suspect]
     Indication: ASTHMA
     Dosage: 2PUFF TWICE PER DAY
     Route: 055
     Dates: start: 20031101
  2. ALBUTEROL [Concomitant]
  3. PULMICORT [Concomitant]
  4. PEPCID [Concomitant]
  5. ASACOL [Concomitant]

REACTIONS (7)
  - ANAEMIA [None]
  - ASTHMA [None]
  - DEHYDRATION [None]
  - DIARRHOEA [None]
  - GASTROINTESTINAL HAEMORRHAGE [None]
  - IRRITABLE BOWEL SYNDROME [None]
  - OVERDOSE [None]
